FAERS Safety Report 6169501-2 (Version None)
Quarter: 2009Q2

REPORT INFORMATION
  Report Type: 
  Country: None (occurrence: None)
  Receive Date: 20090428
  Receipt Date: 20090424
  Transmission Date: 20091009
  Serious: Yes (Death)
  Sender: FDA-Public Use
  Company Number: JP-JNJFOC-20090406119

PATIENT
  Sex: Male

DRUGS (11)
  1. DUROTEP MT PATCH [Suspect]
     Route: 062
  2. DUROTEP MT PATCH [Suspect]
     Route: 062
  3. DUROTEP MT PATCH [Suspect]
     Route: 062
  4. DUROTEP MT PATCH [Suspect]
     Route: 062
  5. DUROTEP MT PATCH [Suspect]
     Route: 062
  6. DUROTEP MT PATCH [Suspect]
     Indication: CANCER PAIN
     Route: 062
  7. MORPHINE HYDROCHLORIDE [Concomitant]
     Indication: CANCER PAIN
     Route: 048
  8. OPSO [Concomitant]
     Route: 048
  9. OPSO [Concomitant]
     Route: 048
  10. OPSO [Concomitant]
     Indication: CANCER PAIN
     Route: 048
  11. PACIF [Concomitant]
     Indication: CANCER PAIN
     Route: 048

REACTIONS (1)
  - LUNG NEOPLASM [None]
